FAERS Safety Report 7499541-2 (Version None)
Quarter: 2011Q2

REPORT INFORMATION
  Report Type: 
  Country: None (occurrence: None)
  Receive Date: 20110524
  Receipt Date: 20110519
  Transmission Date: 20111010
  Serious: Yes (Death, Other)
  Sender: FDA-Public Use
  Company Number: PHHY2011DE39075

PATIENT
  Sex: Male
  Weight: 60 kg

DRUGS (5)
  1. CALCIUM CHANNEL BLOCKERS [Concomitant]
     Dates: end: 20091208
  2. NOVALGIN [Concomitant]
     Dates: start: 20100310
  3. PLATELETS [Concomitant]
  4. ALISKIREN [Suspect]
     Indication: HYPERTENSION
     Dosage: 150 MG, QD
     Route: 048
     Dates: start: 20090416, end: 20091230
  5. PASPERTIN [Concomitant]
     Route: 048
     Dates: start: 20100310

REACTIONS (4)
  - BRONCHIAL CARCINOMA [None]
  - METASTASIS [None]
  - DYSPNOEA [None]
  - C-REACTIVE PROTEIN INCREASED [None]
